FAERS Safety Report 8811255 (Version 1)
Quarter: 2012Q4

REPORT INFORMATION
  Report Type: Spontaneous
  Country: US (occurrence: None)
  Receive Date: 20120925
  Receipt Date: 20120925
  Transmission Date: 20130627
  Serious: Yes (Hospitalization)
  Sender: FDA-Public Use
  Company Number: None

PATIENT
  Age: 60 Year
  Sex: Male

DRUGS (1)
  1. LIMBREL [Suspect]
     Dosage: 500 mg BID

REACTIONS (2)
  - Hypersensitivity [None]
  - Pyrexia [None]
